FAERS Safety Report 5254369-9 (Version None)
Quarter: 2007Q1

REPORT INFORMATION
  Report Type: 
  Country: None (occurrence: None)
  Receive Date: 20070302
  Receipt Date: 20070222
  Transmission Date: 20070707
  Serious: Yes (Hospitalization)
  Sender: FDA-Public Use
  Company Number: SE-ABBOTT-07P-150-0360106-00

PATIENT
  Age: 29 Year
  Sex: Female

DRUGS (2)
  1. REDUCTIL [Suspect]
     Indication: OBESITY
     Route: 048
     Dates: end: 20070205
  2. MICROGONON [Suspect]
     Indication: CONTRACEPTION
     Route: 048
     Dates: end: 20070205

REACTIONS (5)
  - ABDOMINAL PAIN LOWER [None]
  - ABORTION SPONTANEOUS [None]
  - DRUG EXPOSURE DURING PREGNANCY [None]
  - HAEMORRHAGE [None]
  - PREGNANCY [None]
